FAERS Safety Report 22534736 (Version 1)
Quarter: 2023Q2

REPORT INFORMATION
  Report Type: Spontaneous
  Country: US (occurrence: US)
  Receive Date: 20230608
  Receipt Date: 20230608
  Transmission Date: 20230721
  Serious: No
  Sender: FDA-Public Use
  Company Number: US-AUROBINDO-AUR-APL-2022-050144

PATIENT
  Sex: Female

DRUGS (1)
  1. LORATADINE [Suspect]
     Active Substance: LORATADINE
     Indication: Sneezing
     Dosage: 1 DOSAGE FORM( WHEN NEEDED)
     Route: 065

REACTIONS (2)
  - Drug ineffective [Unknown]
  - Product packaging difficult to open [Unknown]
